FAERS Safety Report 4454987-1 (Version None)
Quarter: 2004Q3

REPORT INFORMATION
  Report Type: 
  Country: None (occurrence: None)
  Receive Date: 20040921
  Receipt Date: 20040916
  Transmission Date: 20050211
  Serious: Yes (Other)
  Sender: FDA-Public Use
  Company Number: GB-BRISTOL-MYERS SQUIBB COMPANY-12704003

PATIENT
  Age: 45 Year
  Sex: Male

DRUGS (3)
  1. METHOTREXATE [Suspect]
     Indication: ARTHRALGIA
     Route: 048
  2. MAXTREX [Suspect]
     Indication: ARTHRALGIA
     Route: 048
  3. FOLINIC ACID [Concomitant]

REACTIONS (2)
  - CEREBROVASCULAR DISORDER [None]
  - EPILEPSY [None]
